FAERS Safety Report 8383007-1 (Version None)
Quarter: 2012Q2

REPORT INFORMATION
  Report Type: 
  Country: None (occurrence: None)
  Receive Date: 20120522
  Receipt Date: 20120514
  Transmission Date: 20120825
  Serious: Yes (Hospitalization)
  Sender: FDA-Public Use
  Company Number: 216255

PATIENT
  Age: 49 Year
  Sex: Male

DRUGS (10)
  1. ACETAMINOPHEN [Concomitant]
  2. ULTRACET [Concomitant]
  3. AUGMENTION (AUGMENTION /00756801/) [Concomitant]
  4. ARIXTRA [Concomitant]
  5. PREVISCAN (FLUINDIONE) (20 MG, TABLET) [Suspect]
     Indication: PULMONARY EMBOLISM
     Dosage: 1 TABLETS THEN 1.25 TABLETS, ORAL; 2 TABLETS, ORAL
     Route: 048
     Dates: start: 20101201, end: 20110102
  6. PREVISCAN (FLUINDIONE) (20 MG, TABLET) [Suspect]
     Indication: PRODUCT USED FOR UNKNOWN INDICATION
     Dosage: 1 TABLETS THEN 1.25 TABLETS, ORAL; 2 TABLETS, ORAL
     Route: 048
     Dates: start: 20101201, end: 20110102
  7. PREVISCAN (FLUINDIONE) (20 MG, TABLET) [Suspect]
     Indication: PULMONARY EMBOLISM
     Dosage: 1 TABLETS THEN 1.25 TABLETS, ORAL; 2 TABLETS, ORAL
     Route: 048
     Dates: start: 20101101
  8. PREVISCAN (FLUINDIONE) (20 MG, TABLET) [Suspect]
     Indication: PRODUCT USED FOR UNKNOWN INDICATION
     Dosage: 1 TABLETS THEN 1.25 TABLETS, ORAL; 2 TABLETS, ORAL
     Route: 048
     Dates: start: 20101101
  9. INNOHEP [Suspect]
     Indication: PRODUCT USED FOR UNKNOWN INDICATION
     Dosage: 0.7 ML, SUBCUTANEOUS; 0.9 ML, SUBCUTANEOUS
     Route: 058
     Dates: start: 20101101
  10. INNOHEP [Suspect]
     Indication: PRODUCT USED FOR UNKNOWN INDICATION
     Dosage: 0.7 ML, SUBCUTANEOUS; 0.9 ML, SUBCUTANEOUS
     Route: 058
     Dates: start: 20110105

REACTIONS (10)
  - MUSCULOSKELETAL PAIN [None]
  - CYTOLYTIC HEPATITIS [None]
  - RENAL FAILURE [None]
  - PERIPHERAL SENSORY NEUROPATHY [None]
  - PYREXIA [None]
  - HAEMANGIOMA OF LIVER [None]
  - INFLAMMATION [None]
  - DRUG RASH WITH EOSINOPHILIA AND SYSTEMIC SYMPTOMS [None]
  - MYOCARDITIS [None]
  - RHABDOMYOLYSIS [None]
